FAERS Safety Report 9050685 (Version 3)
Quarter: 2013Q1

REPORT INFORMATION
  Report Type: Spontaneous
  Country: US (occurrence: US)
  Receive Date: 20130205
  Receipt Date: 20130326
  Transmission Date: 20140127
  Serious: No
  Sender: FDA-Public Use
  Company Number: US-009507513-1301USA013303

PATIENT
  Age: 26 None
  Sex: Female

DRUGS (2)
  1. IMPLANON [Suspect]
     Indication: CONTRACEPTION
     Dosage: UNK
     Route: 059
     Dates: end: 20121219
  2. IMPLANON [Suspect]
     Dosage: UNK
     Route: 059
     Dates: start: 20121219

REACTIONS (2)
  - Expired drug administered [Unknown]
  - Medical device complication [Unknown]
